FAERS Safety Report 25191531 (Version 2)
Quarter: 2025Q2

REPORT INFORMATION
  Report Type: Spontaneous
  Country: JP (occurrence: JP)
  Receive Date: 20250414
  Receipt Date: 20250418
  Transmission Date: 20250717
  Serious: Yes (Other)
  Sender: Unknown Manufacturer
  Company Number: JP-MTPC-MTPC2025-0005883

PATIENT
  Age: 9 Decade
  Sex: Male

DRUGS (2)
  1. OZAGREL SODIUM [Suspect]
     Active Substance: OZAGREL SODIUM
     Route: 065
  2. EDARAVONE [Suspect]
     Active Substance: EDARAVONE
     Indication: Cerebral infarction
     Route: 041
     Dates: start: 20250321, end: 20250328

REACTIONS (2)
  - Renal impairment [Not Recovered/Not Resolved]
  - Pyrexia [Not Recovered/Not Resolved]

NARRATIVE: CASE EVENT DATE: 20250325
